FAERS Safety Report 15656552 (Version 5)
Quarter: 2019Q1

REPORT INFORMATION
  Report Type: Spontaneous
  Country: US (occurrence: US)
  Receive Date: 20181126
  Receipt Date: 20190318
  Transmission Date: 20190417
  Serious: Yes (Hospitalization, Other)
  Sender: FDA-Public Use
  Company Number: US-BRISTOL-MYERS SQUIBB COMPANY-BMS-2018-108590

PATIENT
  Sex: Female
  Weight: 121.54 kg

DRUGS (1)
  1. ORENCIA [Suspect]
     Active Substance: ABATACEPT
     Indication: RHEUMATOID ARTHRITIS
     Dosage: 125 MG, QWK
     Route: 058
     Dates: start: 201811

REACTIONS (5)
  - Spinal fracture [Unknown]
  - Back disorder [Unknown]
  - Pain [Unknown]
  - Gait inability [Unknown]
  - Gait disturbance [Unknown]
